FAERS Safety Report 12467031 (Version 1)
Quarter: 2016Q2

REPORT INFORMATION
  Report Type: Spontaneous
  Country: US (occurrence: US)
  Receive Date: 20160615
  Receipt Date: 20160615
  Transmission Date: 20160815
  Serious: No
  Sender: FDA-Public Use
  Company Number: US-BIOGEN-2016BI00246617

PATIENT
  Sex: Female

DRUGS (1)
  1. PLEGRIDY [Suspect]
     Active Substance: PEGINTERFERON BETA-1A
     Indication: MULTIPLE SCLEROSIS
     Route: 065
     Dates: start: 20150605, end: 20150606

REACTIONS (6)
  - Adverse drug reaction [Unknown]
  - White blood cell count increased [Unknown]
  - Injection site haemorrhage [Recovered/Resolved]
  - Fear of injection [Not Recovered/Not Resolved]
  - Red blood cell count increased [Unknown]
  - Urticaria [Unknown]
